FAERS Safety Report 14927063 (Version 1)
Quarter: 2018Q2

REPORT INFORMATION
  Report Type: Spontaneous
  Country: US (occurrence: US)
  Receive Date: 20180523
  Receipt Date: 20180523
  Transmission Date: 20180711
  Serious: Yes (Hospitalization)
  Sender: FDA-Public Use
  Company Number: US-TEVA-2018-US-894105

PATIENT
  Age: 75 Year
  Sex: Female
  Weight: 67 kg

DRUGS (7)
  1. ROBAXIN [Concomitant]
     Active Substance: METHOCARBAMOL
  2. TREANDA [Suspect]
     Active Substance: BENDAMUSTINE HYDROCHLORIDE
     Dosage: 100 MG/M2 ON DAYS 1 AND 2
     Route: 065
     Dates: start: 20180417
  3. TESSALON [Concomitant]
     Active Substance: BENZONATATE
  4. GUAFENISON [Concomitant]
  5. KEPPRA [Concomitant]
     Active Substance: LEVETIRACETAM
  6. TRAMADOL. [Concomitant]
     Active Substance: TRAMADOL
  7. ALLOPURINOL. [Concomitant]
     Active Substance: ALLOPURINOL
     Indication: CHRONIC LYMPHOCYTIC LEUKAEMIA
     Route: 065

REACTIONS (3)
  - Seizure [Recovered/Resolved]
  - White blood cell count decreased [Unknown]
  - Platelet count decreased [Unknown]

NARRATIVE: CASE EVENT DATE: 20180422
